FAERS Safety Report 12187303 (Version 1)
Quarter: 2016Q1

REPORT INFORMATION
  Report Type: Spontaneous
  Country: US (occurrence: None)
  Receive Date: 20160316
  Receipt Date: 20160316
  Transmission Date: 20160526
  Serious: No
  Sender: FDA-Public Use
  Company Number: None

PATIENT
  Age: 63 Year
  Sex: Male

DRUGS (1)
  1. ATRIPLA [Suspect]
     Active Substance: EFAVIRENZ\EMTRICITABINE\TENOFOVIR DISOPROXIL FUMARATE
     Dosage: 600/200/300MG ORAL
     Route: 048

REACTIONS (3)
  - Sleep disorder [None]
  - Middle insomnia [None]
  - Abnormal dreams [None]

NARRATIVE: CASE EVENT DATE: 20160314
